FAERS Safety Report 15757870 (Version 1)
Quarter: 2018Q4

REPORT INFORMATION
  Report Type: Report from Study
  Country: FR (occurrence: FR)
  Receive Date: 20181225
  Receipt Date: 20181225
  Transmission Date: 20190205
  Serious: Yes (Hospitalization, Other)
  Sender: FDA-Public Use
  Company Number: FR-AUROBINDO-AUR-APL-2018-062022

PATIENT
  Age: 5 Month

DRUGS (1)
  1. VALPROIC ACID. [Suspect]
     Active Substance: VALPROIC ACID
     Indication: CEREBROVASCULAR ACCIDENT
     Dosage: 26 MILLIGRAM/KILOGRAM, DAILY
     Route: 065

REACTIONS (2)
  - Decreased appetite [Unknown]
  - Leukopenia [Recovered/Resolved]
